FAERS Safety Report 14134281 (Version 2)
Quarter: 2018Q1

REPORT INFORMATION
  Report Type: Spontaneous
  Country: US (occurrence: US)
  Receive Date: 20171027
  Receipt Date: 20180219
  Transmission Date: 20180508
  Serious: Yes (Life-Threatening, Hospitalization, Other)
  Sender: FDA-Public Use
  Company Number: US-ACCORD-060114

PATIENT
  Age: 62 Year
  Sex: Female

DRUGS (6)
  1. SERTRALINE [Concomitant]
     Active Substance: SERTRALINE HYDROCHLORIDE
     Indication: SCHIZOAFFECTIVE DISORDER
     Dosage: DAILY
  2. CLOZAPINE. [Suspect]
     Active Substance: CLOZAPINE
     Indication: CATATONIA
     Dosage: TITRATED TO 150 MG?NIGHTLY
  3. OLANZAPINE. [Suspect]
     Active Substance: OLANZAPINE
     Indication: SCHIZOAFFECTIVE DISORDER
     Dosage: NIGHTLY
  4. ROSUVASTATIN/ROSUVASTATIN CALCIUM [Concomitant]
  5. WARFARIN [Concomitant]
     Active Substance: WARFARIN
     Indication: DEEP VEIN THROMBOSIS
  6. AMLODIPINE [Concomitant]
     Active Substance: AMLODIPINE BESYLATE

REACTIONS (6)
  - Respiratory failure [Recovering/Resolving]
  - Sedation [Unknown]
  - C-reactive protein increased [Unknown]
  - Pneumonia aspiration [Recovering/Resolving]
  - Septic shock [Recovering/Resolving]
  - Salivary hypersecretion [Unknown]
